FAERS Safety Report 25286427 (Version 1)
Quarter: 2025Q2

REPORT INFORMATION
  Report Type: Spontaneous
  Country: US (occurrence: US)
  Receive Date: 20250509
  Receipt Date: 20250509
  Transmission Date: 20250717
  Serious: No
  Sender: TAKEDA
  Company Number: US-TAKEDA-2025TUS043012

PATIENT

DRUGS (1)
  1. ADDERALL XR [Suspect]
     Active Substance: AMPHETAMINE ASPARTATE\AMPHETAMINE SULFATE\DEXTROAMPHETAMINE SACCHARATE\DEXTROAMPHETAMINE SULFATE
     Indication: Product used for unknown indication

REACTIONS (4)
  - Loss of personal independence in daily activities [Unknown]
  - Brain fog [Unknown]
  - Lethargy [Unknown]
  - Adjustment disorder with depressed mood [Unknown]
